FAERS Safety Report 14297354 (Version 1)
Quarter: 2017Q4

REPORT INFORMATION
  Report Type: Spontaneous
  Country: US (occurrence: US)
  Receive Date: 20171218
  Receipt Date: 20171218
  Transmission Date: 20180321
  Serious: Yes (Other)
  Sender: FDA-Public Use
  Company Number: US-SA-2017SA252548

PATIENT
  Age: 38 Year
  Sex: Female
  Weight: 48 kg

DRUGS (16)
  1. MAGNESIUM CITRATE. [Concomitant]
     Active Substance: MAGNESIUM CITRATE
     Route: 048
  2. IBUPROFEN. [Concomitant]
     Active Substance: IBUPROFEN
     Route: 048
  3. CLINDAMYCIN PHOSPHATE. [Concomitant]
     Active Substance: CLINDAMYCIN PHOSPHATE
     Route: 061
  4. GABAPENTIN. [Concomitant]
     Active Substance: GABAPENTIN
     Route: 048
  5. IMIPRAMINE HYDROCHLORIDE. [Concomitant]
     Active Substance: IMIPRAMINE HYDROCHLORIDE
     Route: 065
  6. AUBAGIO [Suspect]
     Active Substance: TERIFLUNOMIDE
     Indication: RELAPSING-REMITTING MULTIPLE SCLEROSIS
     Route: 048
     Dates: start: 201708, end: 20171129
  7. TYSABRI [Concomitant]
     Active Substance: NATALIZUMAB
  8. LACTOBACILLUS [Concomitant]
     Active Substance: LACTOBACILLUS ACIDOPHILUS
     Route: 048
  9. OMEGA-3 FATTY ACIDS [Concomitant]
     Active Substance: OMEGA-3 FATTY ACIDS
     Route: 048
  10. MULTIPLE VITAMINS [Concomitant]
     Active Substance: VITAMINS
     Route: 048
  11. MODAFINIL. [Concomitant]
     Active Substance: MODAFINIL
     Route: 048
  12. GABAPENTIN. [Concomitant]
     Active Substance: GABAPENTIN
     Route: 048
  13. POTASSIUM [Concomitant]
     Active Substance: POTASSIUM
     Route: 048
  14. CHOLECALCIFEROL [Concomitant]
     Active Substance: CHOLECALCIFEROL
     Route: 048
  15. ACETAMINOPHEN W/HYDROCODONE [Concomitant]
     Active Substance: ACETAMINOPHEN\HYDROCODONE
     Route: 048
  16. VITAMIN D NOS/CALCIUM CARBONATE [Concomitant]
     Route: 048

REACTIONS (10)
  - Dizziness [Recovered/Resolved]
  - Asthenia [Recovered/Resolved]
  - Joint swelling [Unknown]
  - Arthralgia [Unknown]
  - Multiple sclerosis relapse [Recovered/Resolved]
  - Impaired healing [Unknown]
  - Upper respiratory tract infection [Recovered/Resolved]
  - Depression [Unknown]
  - Suicidal ideation [Unknown]
  - Fatigue [Recovered/Resolved]

NARRATIVE: CASE EVENT DATE: 2017
